FAERS Safety Report 20467376 (Version 4)
Quarter: 2022Q1

REPORT INFORMATION
  Report Type: Spontaneous
  Country: SE (occurrence: None)
  Receive Date: 20220214
  Receipt Date: 20220328
  Transmission Date: 20220423
  Serious: Yes (Life-Threatening, Hospitalization)
  Sender: FDA-Public Use
  Company Number: None

PATIENT
  Age: 65 Year
  Sex: Male
  Weight: 68 kg

DRUGS (9)
  1. ENTACAPONE [Suspect]
     Active Substance: ENTACAPONE
     Indication: Parkinson^s disease
     Dosage: STRENGTH: 200 MG ; 1 TABLET 5 TIMES DAILY
     Route: 048
     Dates: start: 20211216, end: 20220109
  2. ZOLPIDEM TARTRATE [Concomitant]
     Active Substance: ZOLPIDEM TARTRATE
     Dosage: STRENGTH: 10 MG; 1 TABLET FOR THE NIGHT
     Route: 048
     Dates: start: 20181105
  3. LEVOTHYROXINE SODIUM [Concomitant]
     Active Substance: LEVOTHYROXINE SODIUM
     Dosage: STRENGTH: 25 MICROGRAM; 1 TABLET DAILY
     Route: 048
     Dates: start: 20200409
  4. BETAMETHASONE [Concomitant]
     Active Substance: BETAMETHASONE
     Indication: Eczema
     Dosage: STRENGTH:1 MG / ML ; 1 MG/ML ONE APPLICATION WHEN NEEDED FOR ECZEMA OF THE SCALP
     Route: 003
     Dates: start: 20170808
  5. LANTUS (SOLOSTAR) [Concomitant]
     Dosage: STRENGTH: 100 UNITS / ML; 100 UNITS/ML 10E ONCE DAILY
     Route: 058
     Dates: start: 20190611
  6. SINEMET [Concomitant]
     Active Substance: CARBIDOPA\LEVODOPA
     Dosage: STRENGTH: 25 MG / 100 MG
     Route: 048
     Dates: start: 20170915
  7. SIMVASTATIN [Concomitant]
     Active Substance: SIMVASTATIN
     Dosage: STRENGTH: 20 MG; 1 TABLET DAILY
     Route: 048
     Dates: start: 20190306
  8. METFORMIN HYDROCHLORIDE [Concomitant]
     Active Substance: METFORMIN HYDROCHLORIDE
     Dosage: STRENGTH: 500 MG; 2 TABLETS 2 TIMES DAILY
     Route: 048
     Dates: start: 20190408
  9. NOVORAPID [Concomitant]
     Active Substance: INSULIN ASPART
     Dosage: STRENGTH: 100 U/ML; DOSE 3 (UNKNOWN UNIT) 100 E/ML 3E + 5E + 4E
     Route: 058
     Dates: start: 20210120

REACTIONS (17)
  - Blood alkaline phosphatase abnormal [Recovering/Resolving]
  - Gamma-glutamyltransferase abnormal [Recovering/Resolving]
  - Blood glucose increased [Recovering/Resolving]
  - Alanine aminotransferase abnormal [Recovering/Resolving]
  - Rash [Recovering/Resolving]
  - Depression [Recovering/Resolving]
  - Dizziness [Recovering/Resolving]
  - Dyspnoea [Recovering/Resolving]
  - Palpitations [Recovering/Resolving]
  - Pyrexia [Recovering/Resolving]
  - Myalgia [Recovering/Resolving]
  - Red blood cell sedimentation rate increased [Recovering/Resolving]
  - Headache [Recovering/Resolving]
  - Anxiety [Unknown]
  - Mental disorder [Unknown]
  - Weight decreased [Unknown]
  - Balance disorder [Unknown]

NARRATIVE: CASE EVENT DATE: 20211201
